FAERS Safety Report 7078597-5 (Version None)
Quarter: 2010Q4

REPORT INFORMATION
  Report Type: 
  Country: None (occurrence: None)
  Receive Date: 20101101
  Receipt Date: 20101101
  Transmission Date: 20110411
  Serious: No
  Sender: FDA-Public Use
  Company Number: None

PATIENT
  Age: 36 Year
  Sex: Female
  Weight: 83.9154 kg

DRUGS (1)
  1. ZYRTEC-D 12 HOUR [Suspect]
     Indication: RHINITIS ALLERGIC
     Dosage: 1 TABLET 2X PER DAY PO
     Route: 048
     Dates: start: 20101029, end: 20101030

REACTIONS (3)
  - HYPOAESTHESIA [None]
  - OEDEMA MOUTH [None]
  - PARAESTHESIA [None]
